FAERS Safety Report 25286405 (Version 1)
Quarter: 2025Q2

REPORT INFORMATION
  Report Type: Spontaneous
  Country: CN (occurrence: CN)
  Receive Date: 20250509
  Receipt Date: 20250509
  Transmission Date: 20250717
  Serious: Yes (Hospitalization)
  Sender: ROCHE
  Company Number: CN-ROCHE-10000279211

PATIENT
  Age: 61 Year
  Sex: Male
  Weight: 68 kg

DRUGS (4)
  1. ATEZOLIZUMAB [Suspect]
     Active Substance: ATEZOLIZUMAB
     Indication: Hepatic cancer
     Route: 042
     Dates: start: 20240918, end: 20250501
  2. LENVATINIB MESYLATE [Suspect]
     Active Substance: LENVATINIB MESYLATE
     Indication: Hepatic cancer
     Route: 048
     Dates: start: 20240918, end: 20250501
  3. OPDIVO [Concomitant]
     Active Substance: NIVOLUMAB
     Route: 042
  4. IPILIMUMAB [Concomitant]
     Active Substance: IPILIMUMAB
     Route: 042

REACTIONS (1)
  - Haematochezia [Recovering/Resolving]

NARRATIVE: CASE EVENT DATE: 20250501
